FAERS Safety Report 4793656-5 (Version None)
Quarter: 2005Q4

REPORT INFORMATION
  Report Type: 
  Country: None (occurrence: None)
  Receive Date: 20051011
  Receipt Date: 20051003
  Transmission Date: 20060501
  Serious: Yes (Hospitalization)
  Sender: FDA-Public Use
  Company Number: PHEH2005US11048

PATIENT

DRUGS (1)
  1. ZELNORM [Suspect]
     Dosage: UNK, UNK
     Dates: start: 20040101

REACTIONS (1)
  - COLITIS ISCHAEMIC [None]
